FAERS Safety Report 19405792 (Version 1)
Quarter: 2021Q2

REPORT INFORMATION
  Report Type: Spontaneous
  Country: DE (occurrence: DE)
  Receive Date: 20210611
  Receipt Date: 20210611
  Transmission Date: 20210717
  Serious: Yes (Hospitalization)
  Sender: FDA-Public Use
  Company Number: DE-TEVA-2021-DE-1920351

PATIENT
  Age: 72 Year
  Sex: Male
  Weight: 94 kg

DRUGS (2)
  1. ASS 100 [Concomitant]
     Active Substance: ASPIRIN
     Dosage: 100 MILLIGRAM DAILY;   0?0?1?0
     Route: 048
  2. METOPROLOL. [Suspect]
     Active Substance: METOPROLOL
     Dosage: 95 MILLIGRAM DAILY;  0?0?1?0
     Route: 048

REACTIONS (5)
  - Chest discomfort [Unknown]
  - Bradycardia [Unknown]
  - Fall [Unknown]
  - Syncope [Unknown]
  - Dyspnoea exertional [Unknown]
